FAERS Safety Report 25816372 (Version 1)
Quarter: 2025Q3

REPORT INFORMATION
  Report Type: Spontaneous
  Country: GB (occurrence: GB)
  Receive Date: 20250918
  Receipt Date: 20250918
  Transmission Date: 20251021
  Serious: Yes (Disabling, Other)
  Sender: ALKEM
  Company Number: None

PATIENT
  Age: 51 Year
  Sex: Female
  Weight: 60 kg

DRUGS (8)
  1. DIMETHYL FUMARATE [Suspect]
     Active Substance: DIMETHYL FUMARATE
     Indication: Multiple sclerosis
     Route: 065
  2. DIMETHYL FUMARATE [Suspect]
     Active Substance: DIMETHYL FUMARATE
     Indication: Pain
  3. BACLOFEN [Concomitant]
     Active Substance: BACLOFEN
     Indication: Product used for unknown indication
     Route: 065
  4. CODEINE [Concomitant]
     Active Substance: CODEINE
     Indication: Pain
     Route: 065
  5. GABAPENTIN [Concomitant]
     Active Substance: GABAPENTIN
     Indication: Product used for unknown indication
     Route: 065
  6. IBUPROFEN [Concomitant]
     Active Substance: IBUPROFEN
     Indication: Pain
     Route: 065
  7. ESTRADIOL [Concomitant]
     Active Substance: ESTRADIOL
     Indication: Pain
     Route: 065
  8. PROGESTERONE [Concomitant]
     Active Substance: PROGESTERONE
     Indication: Pain
     Route: 065

REACTIONS (3)
  - Multiple sclerosis relapse [Not Recovered/Not Resolved]
  - Medication error [Unknown]
  - Product substitution issue [Unknown]

NARRATIVE: CASE EVENT DATE: 20250401
